FAERS Safety Report 5009693-1 (Version None)
Quarter: 2006Q2

REPORT INFORMATION
  Report Type: 
  Country: None (occurrence: None)
  Receive Date: 20060524
  Receipt Date: 20060519
  Transmission Date: 20061013
  Serious: Yes (Life-Threatening, Hospitalization)
  Sender: FDA-Public Use
  Company Number: AU-MERCK-0605AUS00203

PATIENT
  Age: 55 Year
  Sex: Female

DRUGS (2)
  1. ZETIA [Suspect]
     Route: 048
     Dates: start: 20060215
  2. CANDESARTAN CILEXETIL [Concomitant]
     Route: 065

REACTIONS (5)
  - BLOOD PRESSURE INCREASED [None]
  - FEELING HOT [None]
  - HEADACHE [None]
  - MALAISE [None]
  - NAUSEA [None]
